FAERS Safety Report 24005390 (Version 1)
Quarter: 2024Q2

REPORT INFORMATION
  Report Type: Spontaneous
  Country: US (occurrence: US)
  Receive Date: 20240624
  Receipt Date: 20240624
  Transmission Date: 20240716
  Serious: Yes (Other)
  Sender: FDA-Public Use
  Company Number: US-PFIZER INC-PV202400080520

PATIENT
  Age: 24 Year
  Sex: Female

DRUGS (1)
  1. OXBRYTA [Suspect]
     Active Substance: VOXELOTOR
     Indication: Sickle cell disease
     Dosage: UNK

REACTIONS (7)
  - Acute chest syndrome [Unknown]
  - Pulmonary hypertension [Unknown]
  - Renal impairment [Unknown]
  - Sickle cell anaemia with crisis [Unknown]
  - Pain [Unknown]
  - Gastrointestinal disorder [Unknown]
  - Abdominal symptom [Unknown]
